FAERS Safety Report 13646842 (Version 1)
Quarter: 2017Q2

REPORT INFORMATION
  Report Type: Spontaneous
  Country: CN (occurrence: CN)
  Receive Date: 20170613
  Receipt Date: 20170613
  Transmission Date: 20170830
  Serious: Yes (Other)
  Sender: FDA-Public Use
  Company Number: CN-MYLANLABS-2017M1035290

PATIENT

DRUGS (4)
  1. BUPIVACAINE. [Suspect]
     Active Substance: BUPIVACAINE
     Indication: ANAESTHESIA
     Dosage: 0.1% MIXED WITH 10MICROG/ML OF HYDROMORPHONE AT 8ML/H AND OCCASIONAL BOLUSES OF 2ML AT 20M INTERVAL
     Route: 008
  2. EPINEPHRINE. [Suspect]
     Active Substance: EPINEPHRINE
     Indication: ANAESTHESIA
     Dosage: UNK
     Route: 008
  3. LIDOCAINE. [Suspect]
     Active Substance: LIDOCAINE
     Indication: ANAESTHESIA
     Dosage: 3 ML OF 2% AS A TEST DOSE
     Route: 008
  4. HYDROMORPHONE [Suspect]
     Active Substance: HYDROMORPHONE
     Indication: ANAESTHESIA
     Dosage: 10MICROG/ML MIXED WITH 0.1% OF BUPIVACAINE AT 8ML/H AND OCCASIONAL BOLUSES OF 2ML AT 20MIN INTERVAL
     Route: 008

REACTIONS (1)
  - Horner^s syndrome [Recovered/Resolved]
